FAERS Safety Report 18033539 (Version 1)
Quarter: 2020Q3

REPORT INFORMATION
  Report Type: Spontaneous
  Country: GB (occurrence: GB)
  Receive Date: 20200716
  Receipt Date: 20200716
  Transmission Date: 20201103
  Serious: Yes (Life-Threatening)
  Sender: FDA-Public Use
  Company Number: GB-TEVA-2020-GB-1800808

PATIENT
  Age: 58 Year
  Sex: Female
  Weight: 80 kg

DRUGS (7)
  1. NITROFURANTOIN. [Concomitant]
     Active Substance: NITROFURANTOIN
  2. ACETYLSALICYLIC ACID [Concomitant]
     Active Substance: ASPIRIN
  3. CITALOPRAM [Concomitant]
     Active Substance: CITALOPRAM HYDROBROMIDE
  4. DIPYRIDAMOLE. [Concomitant]
     Active Substance: DIPYRIDAMOLE
  5. RAMIPRIL. [Concomitant]
     Active Substance: RAMIPRIL
  6. ATORVASTATIN [Suspect]
     Active Substance: ATORVASTATIN
     Indication: CEREBROVASCULAR ACCIDENT PROPHYLAXIS
     Dosage: 40 MG
     Route: 048
     Dates: start: 2002, end: 20200621
  7. BENDROFLUMETHIAZIDE [Concomitant]
     Active Substance: BENDROFLUMETHIAZIDE

REACTIONS (7)
  - Anuria [Unknown]
  - Acidosis [Unknown]
  - Liver function test abnormal [Unknown]
  - Fatigue [Unknown]
  - Myalgia [Unknown]
  - Malaise [Unknown]
  - Acute kidney injury [Not Recovered/Not Resolved]
